FAERS Safety Report 8833742 (Version 2)
Quarter: 2012Q4

REPORT INFORMATION
  Report Type: 
  Country: FI (occurrence: FI)
  Receive Date: 20121010
  Receipt Date: 20121024
  Transmission Date: 20130627
  Serious: Yes (Life-Threatening, Hospitalization)
  Sender: FDA-Public Use
  Company Number: FI-SANOFI-AVENTIS-2012SA073246

PATIENT
  Age: 68 Year
  Sex: Male

DRUGS (4)
  1. FUROSEMIDE [Suspect]
     Indication: DRUG USE FOR UNKNOWN INDICATION
     Route: 065
  2. METFORMIN [Suspect]
     Indication: TYPE 2 DIABETES MELLITUS
     Route: 065
  3. ACE INHIBITOR NOS [Suspect]
     Indication: DRUG USE FOR UNKNOWN INDICATION
     Route: 065
  4. CIPROFLOXACIN [Concomitant]
     Indication: GASTROENTERITIS

REACTIONS (6)
  - Lactic acidosis [Recovered/Resolved]
  - Base excess negative [Recovered/Resolved]
  - Blood lactic acid increased [Recovered/Resolved]
  - Blood pH decreased [Recovered/Resolved]
  - Renal impairment [Recovered/Resolved]
  - Blood creatinine increased [Recovered/Resolved]
